FAERS Safety Report 9557857 (Version 2)
Quarter: 2013Q3

REPORT INFORMATION
  Report Type: Spontaneous
  Country: US (occurrence: US)
  Receive Date: 20130926
  Receipt Date: 20130926
  Transmission Date: 20140515
  Serious: Yes (Hospitalization, Other)
  Sender: FDA-Public Use
  Company Number: US-009507513-2010SP003339

PATIENT
  Sex: Female
  Weight: 61.24 kg

DRUGS (5)
  1. NUVARING [Suspect]
     Indication: CONTRACEPTION
     Dosage: UNK UNK, QM
     Route: 067
     Dates: start: 200611, end: 200801
  2. MOTRIN [Concomitant]
     Dosage: UNK UNK, PRN
  3. OMEGA-3 MARINE TRIGLYCERIDES [Concomitant]
  4. VITAMINS (UNSPECIFIED) [Concomitant]
  5. CELEXA [Concomitant]
     Dates: start: 2007

REACTIONS (8)
  - Cardiac murmur [Recovered/Resolved]
  - Deep vein thrombosis [Not Recovered/Not Resolved]
  - Pulmonary embolism [Recovered/Resolved]
  - Anxiety [Unknown]
  - Urine analysis abnormal [Unknown]
  - Weight decreased [Unknown]
  - Seasonal allergy [Unknown]
  - Dyspepsia [Unknown]
